FAERS Safety Report 21915647 (Version 1)
Quarter: 2023Q1

REPORT INFORMATION
  Report Type: Spontaneous
  Country: US (occurrence: US)
  Receive Date: 20230126
  Receipt Date: 20230126
  Transmission Date: 20230418
  Serious: Yes (Hospitalization)
  Sender: FDA-Public Use
  Company Number: US-BIOCODEX2-2022000605

PATIENT
  Sex: Female
  Weight: 37.6 kg

DRUGS (12)
  1. DIACOMIT [Suspect]
     Active Substance: STIRIPENTOL
     Indication: Idiopathic generalised epilepsy
     Dosage: 8ML TWICE DAILY
     Route: 065
     Dates: start: 20211230
  2. DIACOMIT [Suspect]
     Active Substance: STIRIPENTOL
     Indication: Idiopathic generalised epilepsy
     Dosage: 8ML (MIX 500MG IN 10 ML OF WATER) TWICE A DAY
     Route: 065
  3. DIACOMIT [Suspect]
     Active Substance: STIRIPENTOL
     Indication: Idiopathic generalised epilepsy
     Dosage: 400 MG BY MOUTH TWICE DAILY
     Route: 048
  4. ONFI [Concomitant]
     Active Substance: CLOBAZAM
     Indication: Product used for unknown indication
  5. ONFI [Concomitant]
     Active Substance: CLOBAZAM
     Indication: Product used for unknown indication
     Dosage: 4ML TWICE A DAY
     Route: 065
  6. ARIPIPRAZOLE [Concomitant]
     Active Substance: ARIPIPRAZOLE
     Indication: Product used for unknown indication
  7. EPIDIOLEX [Concomitant]
     Active Substance: CANNABIDIOL
     Indication: Product used for unknown indication
  8. EPIDIOLEX [Concomitant]
     Active Substance: CANNABIDIOL
     Indication: Product used for unknown indication
     Dosage: 3.5ML TWICE A DAY
     Route: 065
  9. TEGRETOL [Concomitant]
     Active Substance: CARBAMAZEPINE
     Indication: Product used for unknown indication
     Route: 065
  10. TRAZODONE [Concomitant]
     Active Substance: TRAZODONE HYDROCHLORIDE
     Indication: Product used for unknown indication
     Route: 065
  11. VITAMIN D [Concomitant]
     Active Substance: VITAMIN D NOS
     Indication: Product used for unknown indication
     Route: 065
  12. MELATONIN [Concomitant]
     Active Substance: MELATONIN
     Indication: Product used for unknown indication
     Route: 065

REACTIONS (4)
  - Lower limb fracture [Unknown]
  - Fatigue [Unknown]
  - Product use in unapproved indication [Unknown]
  - Product preparation issue [Unknown]
